FAERS Safety Report 5388557-8 (Version None)
Quarter: 2007Q3

REPORT INFORMATION
  Report Type: 
  Country: None (occurrence: None)
  Receive Date: 20070716
  Receipt Date: 20070711
  Transmission Date: 20080115
  Serious: Yes (Death, Hospitalization)
  Sender: FDA-Public Use
  Company Number: US-PFIZER INC-2007048009

PATIENT
  Age: 74 Year
  Sex: Female
  Weight: 62.1 kg

DRUGS (13)
  1. SUTENT [Suspect]
     Indication: FOLLICULAR THYROID CANCER
     Route: 048
     Dates: start: 20061227, end: 20070524
  2. OXYCODONE HCL [Concomitant]
  3. MARINOL [Concomitant]
  4. LEVOXYL [Concomitant]
  5. METHOCARBAMOL [Concomitant]
  6. LISINOPRIL [Concomitant]
  7. PROCHLORPERAZINE [Concomitant]
  8. SYNTHROID [Concomitant]
  9. PREVACID [Concomitant]
  10. FLUTROLINE [Concomitant]
  11. PROCARDIA [Concomitant]
  12. PROTONIX [Concomitant]
  13. COMPAZINE [Concomitant]

REACTIONS (5)
  - DEHYDRATION [None]
  - INFECTION [None]
  - RENAL FAILURE [None]
  - RHABDOMYOLYSIS [None]
  - THROMBOCYTOPENIA [None]
